FAERS Safety Report 18958577 (Version 1)
Quarter: 2021Q1

REPORT INFORMATION
  Report Type: Spontaneous
  Country: US (occurrence: US)
  Receive Date: 20210302
  Receipt Date: 20210302
  Transmission Date: 20210420
  Serious: No
  Sender: FDA-Public Use
  Company Number: US-GILEAD-2021-0519119

PATIENT
  Sex: Male

DRUGS (20)
  1. SPIRIVA [Concomitant]
     Active Substance: TIOTROPIUM BROMIDE MONOHYDRATE
  2. AZITHROMYCIN ANHYDROUS. [Concomitant]
     Active Substance: AZITHROMYCIN ANHYDROUS
  3. ACITRETIN. [Concomitant]
     Active Substance: ACITRETIN
  4. ACYCLOVIR [ACICLOVIR] [Concomitant]
     Active Substance: ACYCLOVIR
  5. SINGULAIR [Concomitant]
     Active Substance: MONTELUKAST SODIUM
  6. OFLOXACIN. [Concomitant]
     Active Substance: OFLOXACIN
  7. DECADRON [Concomitant]
     Active Substance: DEXAMETHASONE
  8. GAMUNEX [Concomitant]
     Active Substance: HUMAN IMMUNOGLOBULIN G
  9. MELATONIN [Concomitant]
     Active Substance: MELATONIN
  10. ALBUTEROL [SALBUTAMOL] [Concomitant]
     Active Substance: ALBUTEROL
  11. MINOCYCLINE HYDROCHLORIDE. [Concomitant]
     Active Substance: MINOCYCLINE HYDROCHLORIDE
  12. CAYSTON [Suspect]
     Active Substance: AZTREONAM
     Indication: BRONCHIECTASIS
     Dosage: 75 MG, TID, QOM
     Route: 055
  13. ATROVENT [Concomitant]
     Active Substance: IPRATROPIUM BROMIDE
  14. PEPCID [Concomitant]
     Active Substance: FAMOTIDINE
  15. HYDROCORTISONE. [Concomitant]
     Active Substance: HYDROCORTISONE
  16. SYMBICORT [Concomitant]
     Active Substance: BUDESONIDE\FORMOTEROL FUMARATE DIHYDRATE
  17. PULMOZYME [Concomitant]
     Active Substance: DORNASE ALFA
  18. POSACONAZOLE [Concomitant]
     Active Substance: POSACONAZOLE
  19. TOBRAMYCIN. [Concomitant]
     Active Substance: TOBRAMYCIN
  20. ADAPALENE. [Concomitant]
     Active Substance: ADAPALENE

REACTIONS (1)
  - Off label use [Not Recovered/Not Resolved]
